FAERS Safety Report 18442289 (Version 1)
Quarter: 2020Q4

REPORT INFORMATION
  Report Type: Report from Study
  Country: CA (occurrence: CA)
  Receive Date: 20201029
  Receipt Date: 20201029
  Transmission Date: 20210114
  Serious: Yes (Life-Threatening)
  Sender: FDA-Public Use
  Company Number: CA-JNJFOC-20201030266

PATIENT
  Sex: Male

DRUGS (13)
  1. ALDACTONE [Concomitant]
     Active Substance: SPIRONOLACTONE
  2. ATORVASTATIN [Concomitant]
     Active Substance: ATORVASTATIN
  3. MAVIK [Concomitant]
     Active Substance: TRANDOLAPRIL
  4. RIVA-METFORMIN [Concomitant]
  5. OPSUMIT [Suspect]
     Active Substance: MACITENTAN
     Indication: PULMONARY HYPERTENSION
     Route: 048
     Dates: start: 20160729
  6. JAMP ASA [Concomitant]
     Active Substance: ASPIRIN
  7. FUROSEMIDE. [Concomitant]
     Active Substance: FUROSEMIDE
  8. SPIRIVA [Concomitant]
     Active Substance: TIOTROPIUM BROMIDE MONOHYDRATE
  9. COUMADIN [Concomitant]
     Active Substance: WARFARIN SODIUM
  10. ADCIRCA [Concomitant]
     Active Substance: TADALAFIL
  11. JAMP-PANTOPRAZOLE [Concomitant]
  12. TYLENOL [Concomitant]
     Active Substance: ACETAMINOPHEN
  13. REVATIO [Concomitant]
     Active Substance: SILDENAFIL CITRATE

REACTIONS (1)
  - Bladder neoplasm [Not Recovered/Not Resolved]
